FAERS Safety Report 9110158 (Version 2)
Quarter: 2013Q2

REPORT INFORMATION
  Report Type: Report from Study
  Country: CA (occurrence: CA)
  Receive Date: 20130222
  Receipt Date: 20130531
  Transmission Date: 20140414
  Serious: Yes (Other)
  Sender: FDA-Public Use
  Company Number: CA-ROCHE-1193805

PATIENT
  Sex: Female
  Weight: 68 kg

DRUGS (4)
  1. HERCEPTIN [Suspect]
     Indication: BREAST CANCER
     Route: 042
     Dates: start: 201207, end: 20130219
  2. PACLITAXEL [Suspect]
     Indication: BREAST CANCER
     Route: 065
     Dates: start: 201206
  3. SYNTHROID [Concomitant]
  4. PAMIDRONATE [Concomitant]
     Route: 065

REACTIONS (1)
  - Neoplasm [Unknown]
